FAERS Safety Report 7985963-X (Version None)
Quarter: 2011Q4

REPORT INFORMATION
  Report Type: 
  Country: None (occurrence: None)
  Receive Date: 20111216
  Receipt Date: 20111213
  Transmission Date: 20120403
  Serious: Yes (Disabling)
  Sender: FDA-Public Use
  Company Number: US-MERCK-1112USA01778

PATIENT

DRUGS (4)
  1. FOSAMAX PLUS D [Suspect]
     Route: 048
     Dates: start: 19980901, end: 20100601
  2. ACTONEL [Suspect]
     Route: 065
     Dates: start: 19980901, end: 20100601
  3. FOSAMAX [Suspect]
     Route: 048
     Dates: start: 19980901, end: 20100601
  4. FOSAMAX [Suspect]
     Route: 048
     Dates: start: 19980901, end: 20100601

REACTIONS (1)
  - FEMUR FRACTURE [None]
